FAERS Safety Report 7357816-1 (Version None)
Quarter: 2011Q1

REPORT INFORMATION
  Report Type: 
  Country: None (occurrence: None)
  Receive Date: 20110309
  Receipt Date: 20110222
  Transmission Date: 20110831
  Serious: Yes (Hospitalization)
  Sender: FDA-Public Use
  Company Number: 11-091

PATIENT
  Age: 82 Year
  Sex: Female

DRUGS (7)
  1. IRBESARTAN [Concomitant]
  2. SIMVASTATIN [Concomitant]
  3. METFORMIN HCL [Concomitant]
  4. CO-CODAMOL (CODEINE PHOSPHATE AND PARACETAMOL) [Concomitant]
  5. MOVIPREP [Concomitant]
  6. IBUPROFEN [Suspect]
     Indication: PAIN
     Dosage: 1200 MG? (400 MG 3X/DAY)
     Route: 048
  7. FELBINAC [Concomitant]

REACTIONS (2)
  - OVERDOSE [None]
  - DUODENAL ULCER [None]
